FAERS Safety Report 7101161-6 (Version None)
Quarter: 2010Q4

REPORT INFORMATION
  Report Type: 
  Country: None (occurrence: None)
  Receive Date: 20101108
  Receipt Date: 20101013
  Transmission Date: 20110411
  Serious: Yes (Death)
  Sender: FDA-Public Use
  Company Number: GAM-298-10-FR

PATIENT
  Age: 81 Year
  Sex: Female

DRUGS (17)
  1. OCTAGAM [Suspect]
     Indication: THROMBOCYTOPENIA
     Dosage: 35 G I.V.
     Route: 042
     Dates: start: 20100526, end: 20100527
  2. OCTAGAM [Suspect]
  3. ALPRAZOLAM [Concomitant]
  4. COLCHIMAX (COLCHICINE) [Concomitant]
  5. FUNGIZONE [Concomitant]
  6. PERFALGAN (PARACETAMOL) [Concomitant]
  7. SOLU-MEDROL [Concomitant]
  8. GLUCIDION G5 (DEXTROSE ANHYDROUS, POTASSIUM CHLORIDE AND SODIUM CHLORI [Concomitant]
  9. HALDOL [Concomitant]
  10. EQUANIL [Concomitant]
  11. LEXOTHYROX (LEVOTHYROXINE) [Concomitant]
  12. VADILEX (IFENPRODIL) [Concomitant]
  13. AMLODIPINE [Concomitant]
  14. MEMANTINE HCL [Concomitant]
  15. NEXIUM [Concomitant]
  16. CALCIPARINE [Concomitant]
  17. GLUCO 5 % (GLUCOSE) [Concomitant]

REACTIONS (4)
  - BRONCHIAL OBSTRUCTION [None]
  - CHOKING [None]
  - DYSPHAGIA [None]
  - ISCHAEMIC STROKE [None]
